FAERS Safety Report 11876638 (Version 1)
Quarter: 2015Q4

REPORT INFORMATION
  Report Type: Spontaneous
  Country: BR (occurrence: BR)
  Receive Date: 20151229
  Receipt Date: 20151229
  Transmission Date: 20160305
  Serious: Yes (Other)
  Sender: FDA-Public Use
  Company Number: PHHY2015BR170314

PATIENT
  Age: 74 Year
  Sex: Female
  Weight: 78 kg

DRUGS (4)
  1. DIOVAN TRIPLE [Suspect]
     Active Substance: AMLODIPINE BESYLATE\HYDROCHLOROTHIAZIDE\VALSARTAN
     Indication: HYPERTENSION
     Dosage: 1 DF, QD (IN THE MORNING)
     Route: 065
  2. DIOVAN [Suspect]
     Active Substance: VALSARTAN
     Indication: HYPERTENSION
     Dosage: 1 DF, QD (IN THE MORNING)
     Route: 048
  3. DIOVAN TRIPLE [Suspect]
     Active Substance: AMLODIPINE BESYLATE\HYDROCHLOROTHIAZIDE\VALSARTAN
     Dosage: 1 DF, BID (ONE IN THE MORNING AND ONE AT NIGHT)
     Route: 048
  4. CORTISONE [Suspect]
     Active Substance: CORTISONE\HYDROCORTISONE
     Indication: OROPHARYNGEAL PAIN
     Dosage: 1 DF, BID (ONE TABLET IN THE MORNING AND ONE AT NIGHT)
     Route: 048
     Dates: start: 20150809

REACTIONS (11)
  - Oropharyngeal pain [Recovered/Resolved]
  - Throat irritation [Unknown]
  - Feeling abnormal [Unknown]
  - Peripheral swelling [Not Recovered/Not Resolved]
  - Blood sodium abnormal [Unknown]
  - Hypokinesia [Not Recovered/Not Resolved]
  - Decreased immune responsiveness [Recovered/Resolved]
  - Radiculopathy [Unknown]
  - Varicella [Recovered/Resolved]
  - Blood pressure increased [Unknown]
  - Pain [Unknown]

NARRATIVE: CASE EVENT DATE: 20150809
